FAERS Safety Report 7194269-0 (Version None)
Quarter: 2010Q4

REPORT INFORMATION
  Report Type: 
  Country: None (occurrence: None)
  Receive Date: 20101223
  Receipt Date: 20101222
  Transmission Date: 20110411
  Serious: Yes (Other)
  Sender: FDA-Public Use
  Company Number: US-AMGEN-USASP2010007787

PATIENT

DRUGS (2)
  1. NPLATE [Suspect]
     Indication: IDIOPATHIC THROMBOCYTOPENIC PURPURA
     Dates: start: 20101124
  2. NPLATE [Suspect]
     Dosage: 2 A?G/KG, UNK
     Dates: start: 20101201

REACTIONS (2)
  - HAEMATOSPERMIA [None]
  - PLATELET COUNT DECREASED [None]
